FAERS Safety Report 14253442 (Version 1)
Quarter: 2017Q4

REPORT INFORMATION
  Report Type: Not Available
  Country: AU (occurrence: AU)
  Receive Date: 20171205
  Receipt Date: 20171205
  Transmission Date: 20180321
  Serious: Yes (Other)
  Sender: FDA-Public Use
  Company Number: AU-ANIPHARMA-2017-AU-000057

PATIENT
  Age: 55 Year
  Sex: Female

DRUGS (1)
  1. RISPERIDONE (NON-SPECIFIC) [Suspect]
     Active Substance: RISPERIDONE

REACTIONS (3)
  - Granuloma [Unknown]
  - Mastitis [Unknown]
  - Hyperprolactinaemia [Unknown]
